FAERS Safety Report 9956046 (Version 1)
Quarter: 2014Q1

REPORT INFORMATION
  Report Type: Report from Study
  Country: US (occurrence: US)
  Receive Date: 20140304
  Receipt Date: 20140304
  Transmission Date: 20141002
  Serious: No
  Sender: FDA-Public Use
  Company Number: US-ABBVIE-13P-163-1087802-00

PATIENT
  Age: 46 Year
  Sex: Male
  Weight: 81.72 kg

DRUGS (2)
  1. HUMIRA [Suspect]
     Indication: BEHCET^S SYNDROME
     Route: 058
     Dates: start: 201301, end: 201304
  2. HUMIRA [Suspect]
     Route: 058
     Dates: start: 201304

REACTIONS (2)
  - Drug ineffective [Unknown]
  - Off label use [Unknown]
